FAERS Safety Report 5027652-X (Version None)
Quarter: 2006Q2

REPORT INFORMATION
  Report Type: 
  Country: None (occurrence: None)
  Receive Date: 20060616
  Receipt Date: 20060605
  Transmission Date: 20061013
  Serious: Yes (Death)
  Sender: FDA-Public Use
  Company Number: JP-ABBOTT-06P-087-0335253-00

PATIENT
  Age: 79 Year
  Sex: Female

DRUGS (8)
  1. CLARITHROMYCIN [Suspect]
     Indication: PNEUMONIA
     Route: 048
     Dates: start: 20060331, end: 20060406
  2. CEFMETAZOLE SODIUM [Suspect]
     Indication: PNEUMONIA
     Route: 042
     Dates: start: 20060228, end: 20060306
  3. CEFMETAZOLE SODIUM [Suspect]
     Route: 042
     Dates: start: 20060401, end: 20060408
  4. LEVOFLOXACIN [Suspect]
     Indication: URINARY TRACT INFECTION
     Route: 048
     Dates: start: 20060325, end: 20060330
  5. SULPERAZON [Concomitant]
     Indication: PNEUMONIA
     Route: 042
     Dates: start: 20060307, end: 20060320
  6. ISOSORBIDE MONONITRATE [Concomitant]
     Indication: CARDIAC FAILURE
     Route: 048
     Dates: start: 20060225, end: 20060416
  7. FUROSEMIDE [Concomitant]
     Indication: RENAL FAILURE
     Route: 048
     Dates: start: 19980225, end: 20060416
  8. AMLODIPINE BESYLATE [Concomitant]
     Indication: MYOCARDIAL INFARCTION
     Route: 048
     Dates: start: 20060225, end: 20060416

REACTIONS (1)
  - TOXIC EPIDERMAL NECROLYSIS [None]
